FAERS Safety Report 4928245-2 (Version None)
Quarter: 2006Q1

REPORT INFORMATION
  Report Type: 
  Country: None (occurrence: None)
  Receive Date: 20060127
  Receipt Date: 20051213
  Transmission Date: 20060701
  Serious: Yes (Other)
  Sender: FDA-Public Use
  Company Number: 2005168401

PATIENT
  Age: 52 Year
  Sex: Male
  Weight: 113 kg

DRUGS (11)
  1. LYRICA [Suspect]
     Indication: NEURALGIA
     Dosage: 100 MG (50 MG, 2 IN 1 D)
     Dates: start: 20051122, end: 20051130
  2. OXYCONTIN [Concomitant]
  3. PERCOCET [Concomitant]
  4. RENAGEL [Concomitant]
  5. NEPHRO-VITE (VITAMINS NOS) [Concomitant]
  6. COREG [Concomitant]
  7. VALIUM [Concomitant]
  8. KLONOPIN [Concomitant]
  9. PROMETHAZINE [Concomitant]
  10. DOCUSATE (DOCUSATE) [Concomitant]
  11. PROAMATINE [Concomitant]

REACTIONS (2)
  - BLOOD URINE [None]
  - RENAL PAIN [None]
